FAERS Safety Report 7978587-1 (Version None)
Quarter: 2011Q4

REPORT INFORMATION
  Report Type: 
  Country: None (occurrence: None)
  Receive Date: 20111214
  Receipt Date: 20111209
  Transmission Date: 20120403
  Serious: Yes (Other)
  Sender: FDA-Public Use
  Company Number: DK-SANOFI-AVENTIS-2011SA057534

PATIENT
  Age: 54 Year
  Sex: Female

DRUGS (6)
  1. PLAVIX [Suspect]
     Indication: CEREBRAL INFARCTION
     Dosage: STYRKE: 75 MG
     Route: 048
     Dates: start: 20100501, end: 20110401
  2. CENTYL MED KALIUMKLORID [Concomitant]
     Indication: HYPERTENSION
     Dates: start: 20050607
  3. ACETAMINOPHEN [Concomitant]
     Indication: PAIN
     Dates: start: 20060831, end: 20100705
  4. CODEINE SULFATE [Concomitant]
     Indication: PAIN
     Dates: start: 20090108
  5. TODOLAC [Concomitant]
     Indication: PAIN
     Dates: start: 02080724
  6. SIMVASTATIN [Concomitant]
     Dates: start: 20100113, end: 20100807

REACTIONS (3)
  - LIVER DISORDER [None]
  - ANTINUCLEAR ANTIBODY INCREASED [None]
  - PORPHYRIA NON-ACUTE [None]
